FAERS Safety Report 7653442-5 (Version None)
Quarter: 2011Q3

REPORT INFORMATION
  Report Type: 
  Country: None (occurrence: None)
  Receive Date: 20110803
  Receipt Date: 20110728
  Transmission Date: 20111222
  Serious: Yes (Other)
  Sender: FDA-Public Use
  Company Number: US-PFIZER INC-2011172710

PATIENT
  Sex: Female
  Weight: 59.41 kg

DRUGS (1)
  1. RELPAX [Suspect]
     Indication: HEADACHE
     Dosage: 40 MG, AS NEEDED
     Route: 048
     Dates: start: 20110708, end: 20110708

REACTIONS (2)
  - RASH MACULAR [None]
  - SKIN DISCOLOURATION [None]
